FAERS Safety Report 20571294 (Version 1)
Quarter: 2022Q1

REPORT INFORMATION
  Report Type: Report from Study
  Country: US (occurrence: US)
  Receive Date: 20220309
  Receipt Date: 20220309
  Transmission Date: 20220423
  Serious: Yes (Other)
  Sender: FDA-Public Use
  Company Number: US-ABBVIE-22K-163-4288992-00

PATIENT
  Sex: Female

DRUGS (1)
  1. RINVOQ [Suspect]
     Active Substance: UPADACITINIB
     Indication: Rheumatoid arthritis
     Route: 048

REACTIONS (9)
  - Spinal fusion surgery [Unknown]
  - Gastrointestinal surgery [Unknown]
  - Spinal operation [Unknown]
  - Rotator cuff syndrome [Unknown]
  - Nephrolithiasis [Unknown]
  - Poor quality sleep [Unknown]
  - Arthropathy [Unknown]
  - Mobility decreased [Unknown]
  - Cough [Unknown]

NARRATIVE: CASE EVENT DATE: 20210101
